FAERS Safety Report 17017993 (Version 1)
Quarter: 2019Q4

REPORT INFORMATION
  Report Type: Spontaneous
  Country: CA (occurrence: CA)
  Receive Date: 20191111
  Receipt Date: 20191111
  Transmission Date: 20200122
  Serious: Yes (Life-Threatening, Hospitalization, Other)
  Sender: FDA-Public Use
  Company Number: CA-PURDUE-CAN-2019-0010399

PATIENT
  Sex: Male

DRUGS (76)
  1. OXYCONTIN [Suspect]
     Active Substance: OXYCODONE HYDROCHLORIDE
     Dosage: 640 MG, 5/DAY
     Route: 065
     Dates: start: 20081209, end: 20090107
  2. CIPRALEX [Concomitant]
     Active Substance: ESCITALOPRAM OXALATE
     Dosage: 20 MG, QD PRN
     Route: 065
     Dates: start: 20070813, end: 20091214
  3. KETOROLAC [Concomitant]
     Active Substance: KETOROLAC TROMETHAMINE
     Indication: PRODUCT USED FOR UNKNOWN INDICATION
     Dosage: 1 DROP, QID
     Route: 047
     Dates: start: 20080609
  4. ZYLOPRIM [Concomitant]
     Active Substance: ALLOPURINOL
     Indication: PRODUCT USED FOR UNKNOWN INDICATION
     Dosage: 300 MG, DAILY
     Route: 065
     Dates: start: 20080709
  5. VIAGRA [Concomitant]
     Active Substance: SILDENAFIL CITRATE
     Indication: PRODUCT USED FOR UNKNOWN INDICATION
     Dosage: 100 MG, PRN
     Route: 065
     Dates: start: 20081209
  6. AMOXICILINA CLAV RATHIOPHARM [Concomitant]
     Indication: PRODUCT USED FOR UNKNOWN INDICATION
     Dosage: 1 TABLET, TID
     Route: 065
     Dates: start: 20090107
  7. FOLIC ACID. [Concomitant]
     Active Substance: FOLIC ACID
     Indication: PRODUCT USED FOR UNKNOWN INDICATION
     Dosage: 5 MG, DAILY
     Route: 065
     Dates: start: 20090320, end: 20100608
  8. CIPROFLOXACIN. [Concomitant]
     Active Substance: CIPROFLOXACIN
     Indication: PRODUCT USED FOR UNKNOWN INDICATION
     Dosage: 500 MG, BID
     Route: 065
     Dates: start: 20090730
  9. CYMBALTA [Concomitant]
     Active Substance: DULOXETINE HYDROCHLORIDE
     Indication: PRODUCT USED FOR UNKNOWN INDICATION
     Dosage: 120 MG, DAILY
     Route: 065
     Dates: start: 20100603
  10. EPREX [Concomitant]
     Active Substance: ERYTHROPOIETIN
     Indication: PRODUCT USED FOR UNKNOWN INDICATION
     Dosage: 0.5 ML, WEEKLY
     Route: 058
     Dates: start: 20100625
  11. OXYNEO [Suspect]
     Active Substance: OXYCODONE
     Indication: PRODUCT USED FOR UNKNOWN INDICATION
     Dosage: 40 MG, UNK
     Route: 065
     Dates: start: 20130319, end: 20130326
  12. OXYNEO [Suspect]
     Active Substance: OXYCODONE
     Dosage: 360 MG, QID
     Route: 065
     Dates: start: 20120723, end: 20130319
  13. OXYCONTIN [Suspect]
     Active Substance: OXYCODONE HYDROCHLORIDE
     Dosage: 560 MG, 5/DAY
     Route: 065
     Dates: start: 20080819, end: 20081209
  14. OXYCONTIN [Suspect]
     Active Substance: OXYCODONE HYDROCHLORIDE
     Dosage: 80 MG, QID + 80 MG HS
     Route: 065
     Dates: start: 20080305, end: 20080526
  15. HYDROMORPHONE [Suspect]
     Active Substance: HYDROMORPHONE
     Indication: PRODUCT USED FOR UNKNOWN INDICATION
     Dosage: 1 MG, Q4H PRN
     Route: 065
     Dates: start: 20100204
  16. SUPEUDOL [Suspect]
     Active Substance: OXYCODONE HYDROCHLORIDE
     Dosage: 20 -40 MG PRN MAX 200 MG DAILY
     Route: 065
     Dates: start: 20090218, end: 20090420
  17. CIPRALEX [Concomitant]
     Active Substance: ESCITALOPRAM OXALATE
     Indication: PRODUCT USED FOR UNKNOWN INDICATION
     Dosage: 20 MG, DAILY
     Route: 065
     Dates: start: 20110715
  18. ZOPICLONE [Concomitant]
     Active Substance: ZOPICLONE
     Indication: PRODUCT USED FOR UNKNOWN INDICATION
     Dosage: 15 MG, NOCTE PRN
     Route: 065
     Dates: start: 20100319
  19. FLOMAX [Concomitant]
     Active Substance: TAMSULOSIN HYDROCHLORIDE
     Indication: PRODUCT USED FOR UNKNOWN INDICATION
     Dosage: 0.8 MG, DAILY
     Route: 065
     Dates: start: 20071022
  20. HOMATROPINE EYE DROPS [Concomitant]
     Indication: PRODUCT USED FOR UNKNOWN INDICATION
     Dosage: 1 DROP, TID
     Route: 047
     Dates: start: 20080703
  21. AZITHROMYCIN ANHYDROUS. [Concomitant]
     Active Substance: AZITHROMYCIN ANHYDROUS
     Dosage: 250 MG, DAILY, 500 MG NOW
     Route: 065
     Dates: start: 20100408, end: 20101112
  22. CELEBREX [Concomitant]
     Active Substance: CELECOXIB
     Indication: PRODUCT USED FOR UNKNOWN INDICATION
     Dosage: 200 MG, BID
     Route: 065
     Dates: start: 20090107
  23. AVELOX [Concomitant]
     Active Substance: MOXIFLOXACIN HYDROCHLORIDE
     Indication: PRODUCT USED FOR UNKNOWN INDICATION
     Dosage: 400 MG, DAILY
     Route: 065
     Dates: start: 20090304
  24. CIPRO XL [Concomitant]
     Active Substance: CIPROFLOXACIN\CIPROFLOXACIN HYDROCHLORIDE
     Indication: PRODUCT USED FOR UNKNOWN INDICATION
     Dosage: 1000 MG, DAILY
     Route: 065
     Dates: start: 20091109, end: 20101123
  25. TAMSULOSIN RATIOPHARM [Concomitant]
     Indication: PRODUCT USED FOR UNKNOWN INDICATION
     Dosage: 0.8 MG, DAILY
     Route: 065
     Dates: start: 20091120
  26. HYDERM                             /00028604/ [Concomitant]
     Indication: PRODUCT USED FOR UNKNOWN INDICATION
     Dosage: APPLY TWICE DAILY
     Route: 065
     Dates: start: 20100121
  27. CYMBALTA [Concomitant]
     Active Substance: DULOXETINE HYDROCHLORIDE
     Dosage: 60 MG, DAILY
     Route: 065
     Dates: start: 20100219, end: 20100603
  28. BISACODYL. [Concomitant]
     Active Substance: BISACODYL
     Indication: PRODUCT USED FOR UNKNOWN INDICATION
     Dosage: 5 MG, UNK
     Route: 065
  29. OXYNEO [Suspect]
     Active Substance: OXYCODONE
     Dosage: 480 MG, 5/DAY
     Route: 065
     Dates: start: 20120430, end: 20120625
  30. OXYCONTIN [Suspect]
     Active Substance: OXYCODONE HYDROCHLORIDE
     Dosage: 480 MG, QID
     Route: 065
     Dates: start: 20080108, end: 20080305
  31. OXYCONTIN [Suspect]
     Active Substance: OXYCODONE HYDROCHLORIDE
     Dosage: 480 MG, Q8H
     Route: 065
     Dates: start: 20071031, end: 20080108
  32. FENTANYL. [Suspect]
     Active Substance: FENTANYL
     Indication: PRODUCT USED FOR UNKNOWN INDICATION
     Dosage: 25 MCG, Q1H EVERY TWO DAYS
     Route: 065
     Dates: start: 20120705
  33. FENTANYL. [Suspect]
     Active Substance: FENTANYL
     Dosage: 75 MCG Q1HR EVERY OTHER DAY
     Route: 065
     Dates: start: 20071031, end: 20071212
  34. ZOPICLONE [Concomitant]
     Active Substance: ZOPICLONE
     Dosage: 15 MG, HS
     Route: 065
     Dates: start: 20070919
  35. CILAZAPRIL MONOHYDRATE W/HYDROCHLOROTHIAZIDE [Concomitant]
     Indication: PRODUCT USED FOR UNKNOWN INDICATION
     Dosage: 1 TABLET, BID
     Route: 065
     Dates: start: 20071022
  36. NADOLOL. [Concomitant]
     Active Substance: NADOLOL
     Indication: PRODUCT USED FOR UNKNOWN INDICATION
     Dosage: 80 MG, DAILY
     Route: 065
     Dates: start: 20071022, end: 20130219
  37. PREDNISOLONE ACETATE. [Concomitant]
     Active Substance: PREDNISOLONE ACETATE
     Indication: PRODUCT USED FOR UNKNOWN INDICATION
     Dosage: 1 DROP, QID
     Route: 047
     Dates: start: 20080609
  38. AZITHROMYCIN ANHYDROUS. [Concomitant]
     Active Substance: AZITHROMYCIN ANHYDROUS
     Indication: PRODUCT USED FOR UNKNOWN INDICATION
     Dosage: 250 MG, DAILY
     Route: 065
     Dates: start: 20101112
  39. SOFLAX                             /00061602/ [Concomitant]
     Dosage: 200 MG, HS
     Route: 065
     Dates: start: 20091030, end: 20100329
  40. POVIDONE-IODINE. [Concomitant]
     Active Substance: POVIDONE-IODINE
     Indication: PRODUCT USED FOR UNKNOWN INDICATION
     Dosage: UNK
     Route: 065
     Dates: start: 20100211, end: 20100709
  41. OXYCONTIN [Suspect]
     Active Substance: OXYCODONE HYDROCHLORIDE
     Indication: PRODUCT USED FOR UNKNOWN INDICATION
     Dosage: 640 MG, 5/DAY
     Route: 065
     Dates: start: 20090218, end: 20120301
  42. OXYCONTIN [Suspect]
     Active Substance: OXYCODONE HYDROCHLORIDE
     Dosage: 400 MG, Q8H
     Route: 065
     Dates: start: 20070919, end: 20071031
  43. OXYCODONE [Suspect]
     Active Substance: OXYCODONE
     Indication: PRODUCT USED FOR UNKNOWN INDICATION
     Dosage: 20 MG, UNK
     Route: 065
     Dates: start: 20120625
  44. FENTANYL. [Suspect]
     Active Substance: FENTANYL
     Dosage: 75 MCG Q1HR EVERY TWO DAYS
     Route: 065
     Dates: start: 20080206, end: 20120621
  45. LORAZEPAM. [Concomitant]
     Active Substance: LORAZEPAM
     Indication: PRODUCT USED FOR UNKNOWN INDICATION
     Dosage: 1 MG, QID
     Route: 065
     Dates: start: 20070919, end: 20120910
  46. CITALOPRAM [Concomitant]
     Active Substance: CITALOPRAM HYDROBROMIDE
     Indication: PRODUCT USED FOR UNKNOWN INDICATION
     Dosage: 40 MG, DAILY
     Route: 065
     Dates: start: 20080512
  47. TOBRADEX [Concomitant]
     Active Substance: DEXAMETHASONE\TOBRAMYCIN
     Indication: PRODUCT USED FOR UNKNOWN INDICATION
     Dosage: 1 DROP, BID
     Route: 047
     Dates: start: 20080714, end: 20080731
  48. SULFAMETHOXAZOLE AND TRIMETHOPRIM [Concomitant]
     Active Substance: SULFAMETHOXAZOLE\TRIMETHOPRIM
     Indication: PRODUCT USED FOR UNKNOWN INDICATION
     Dosage: 1 TABLET, BID
     Route: 065
     Dates: start: 20100629
  49. MACROBID [Concomitant]
     Active Substance: NITROFURANTOIN\NITROFURANTOIN MONOHYDRATE
     Indication: PRODUCT USED FOR UNKNOWN INDICATION
     Dosage: 100 MG, DAILY
     Route: 065
     Dates: start: 20110812, end: 20120908
  50. OXYCONTIN [Suspect]
     Active Substance: OXYCODONE HYDROCHLORIDE
     Dosage: 640 MG, 5/DAY
     Route: 065
     Dates: start: 20081209, end: 20090107
  51. OXYCODONE [Suspect]
     Active Substance: OXYCODONE
     Dosage: 20 MG TABLETS, 1-2 PRN MAX5
     Route: 065
     Dates: start: 20120430, end: 20120515
  52. SUPEUDOL [Suspect]
     Active Substance: OXYCODONE HYDROCHLORIDE
     Dosage: 20 -40 MG PRN MAX 200 MG DAILY
     Route: 065
     Dates: start: 20110715, end: 20110909
  53. FENTANYL. [Suspect]
     Active Substance: FENTANYL
     Dosage: 50 MCG, Q1H EVERY TWO DAYS
     Route: 065
     Dates: start: 20120621, end: 20120705
  54. AZITHROMYCIN ANHYDROUS. [Concomitant]
     Active Substance: AZITHROMYCIN ANHYDROUS
     Dosage: 250 MG DAILY 500 MG SINGLE ADMINSTRATION
     Route: 065
     Dates: start: 20080828, end: 20100408
  55. NORFLOXACIN [Concomitant]
     Active Substance: NORFLOXACIN
     Indication: PRODUCT USED FOR UNKNOWN INDICATION
     Dosage: 800 MG, DAILY
     Route: 065
     Dates: start: 20100728, end: 20111220
  56. OXYNEO [Suspect]
     Active Substance: OXYCODONE
     Dosage: 400 MG, QID
     Route: 065
     Dates: start: 20120625, end: 20120723
  57. OXY IR [Suspect]
     Active Substance: OXYCODONE HYDROCHLORIDE
     Dosage: 20 MG TABLETS 1-2 PRN, MAX 8/DAY
     Route: 065
     Dates: start: 20080108, end: 20080819
  58. OXYCONTIN [Suspect]
     Active Substance: OXYCODONE HYDROCHLORIDE
     Dosage: 480 MG, 5/DAY
     Route: 065
     Dates: start: 20080526, end: 20080819
  59. FENTANYL. [Suspect]
     Active Substance: FENTANYL
     Dosage: 100 MCG, Q1H EVERY 2 DAYS
     Route: 065
     Dates: start: 20070919, end: 20071031
  60. CYMBALTA [Concomitant]
     Active Substance: DULOXETINE HYDROCHLORIDE
     Dosage: 30 MG, DAILY
     Route: 065
     Dates: start: 20100122, end: 20100219
  61. FAMOTIDINE. [Concomitant]
     Active Substance: FAMOTIDINE
     Indication: PRODUCT USED FOR UNKNOWN INDICATION
     Dosage: 40 MG, HS
     Route: 065
     Dates: start: 20100924, end: 20121001
  62. ANDROGEL [Concomitant]
     Active Substance: TESTOSTERONE
     Indication: PRODUCT USED FOR UNKNOWN INDICATION
     Dosage: 5 GRAMS OF 1%, DAILY
     Route: 065
     Dates: start: 20120703
  63. OXY IR [Suspect]
     Active Substance: OXYCODONE HYDROCHLORIDE
     Indication: PRODUCT USED FOR UNKNOWN INDICATION
     Dosage: 20 MG TABLETS 1-2 PRN, MAX 10/DAY
     Route: 065
     Dates: start: 20080819, end: 20090107
  64. OXY IR [Suspect]
     Active Substance: OXYCODONE HYDROCHLORIDE
     Dosage: 20 MG TABLETS 1-2 PRN, MAX 6/DAY
     Route: 065
     Dates: start: 20070919, end: 20080108
  65. OXYCODONE [Suspect]
     Active Substance: OXYCODONE
     Dosage: 40 MG, PRN
     Route: 065
     Dates: start: 20120515, end: 20120625
  66. SUPEUDOL [Suspect]
     Active Substance: OXYCODONE HYDROCHLORIDE
     Indication: PRODUCT USED FOR UNKNOWN INDICATION
     Dosage: 40 MG, Q4H PRN
     Route: 065
     Dates: start: 20090107, end: 20090218
  67. TOBRADEX [Concomitant]
     Active Substance: DEXAMETHASONE\TOBRAMYCIN
     Indication: PRODUCT USED FOR UNKNOWN INDICATION
     Dosage: 1 APPLIC, TID
     Route: 061
     Dates: start: 20080703
  68. FAMOTIDINE. [Concomitant]
     Active Substance: FAMOTIDINE
     Dosage: 40 MG, BID
     Route: 065
     Dates: start: 20121001
  69. OXYNEO [Suspect]
     Active Substance: OXYCODONE
     Dosage: 640 MG, 5/DAY
     Route: 065
     Dates: start: 20120402, end: 20120430
  70. OXYCONTIN [Suspect]
     Active Substance: OXYCODONE HYDROCHLORIDE
     Dosage: 560 MG, TID
     Route: 065
     Dates: start: 20090107, end: 20090218
  71. FENTANYL. [Suspect]
     Active Substance: FENTANYL
     Dosage: 50 MCG, Q1H EVERY TWO DAYS
     Route: 065
     Dates: start: 20071212, end: 20080206
  72. SENOKOT [Concomitant]
     Active Substance: SENNOSIDES
     Indication: PRODUCT USED FOR UNKNOWN INDICATION
     Dosage: 17.2 MG, BID
     Route: 065
     Dates: start: 20091230, end: 20121231
  73. ZYMAR [Concomitant]
     Active Substance: GATIFLOXACIN
     Indication: PRODUCT USED FOR UNKNOWN INDICATION
     Dosage: 1 DROP, QID
     Route: 047
     Dates: start: 20080609
  74. SOFLAX                             /00061602/ [Concomitant]
     Indication: PRODUCT USED FOR UNKNOWN INDICATION
     Dosage: 400 MG, HS
     Route: 065
     Dates: start: 20100329
  75. SOFLAX                             /00061602/ [Concomitant]
     Dosage: 200 MG, AM
     Route: 065
     Dates: start: 20090702
  76. SOFLAX                             /00061602/ [Concomitant]
     Dosage: 100 MG, BID PRN
     Route: 065
     Dates: start: 20090107, end: 20130319

REACTIONS (12)
  - Near death experience [Unknown]
  - Fall [Unknown]
  - Marital problem [Unknown]
  - Parent-child problem [Unknown]
  - Loss of personal independence in daily activities [Unknown]
  - Off label use [Unknown]
  - Psychological trauma [Not Recovered/Not Resolved]
  - Bankruptcy [Unknown]
  - Neck injury [Unknown]
  - Mental impairment [Unknown]
  - Drug dependence [Unknown]
  - Memory impairment [Unknown]
